FAERS Safety Report 25872399 (Version 1)
Quarter: 2025Q4

REPORT INFORMATION
  Report Type: Report from Study
  Country: US (occurrence: US)
  Receive Date: 20251002
  Receipt Date: 20251002
  Transmission Date: 20260118
  Serious: Yes (Other)
  Sender: UCB
  Company Number: US-UCBSA-2024059298

PATIENT
  Age: 25 Year
  Sex: Male
  Weight: 52 kg

DRUGS (5)
  1. FINTEPLA [Suspect]
     Active Substance: FENFLURAMINE
     Indication: Severe myoclonic epilepsy of infancy
     Dosage: 4.5 MILLILITER, 2X/DAY (BID)
     Dates: start: 20210702
  2. FINTEPLA [Suspect]
     Active Substance: FENFLURAMINE
     Indication: Seizure
     Dosage: 4.5 MILLILITER, 2X/DAY (BID)(19.8 MILLIGRAM PER DAY)
     Dates: start: 20231023
  3. FINTEPLA [Suspect]
     Active Substance: FENFLURAMINE
     Dosage: 4.5 MILLILITER, 2X/DAY (BID)
     Dates: start: 20231023
  4. FINTEPLA [Suspect]
     Active Substance: FENFLURAMINE
     Dosage: INCREASED DOSE
  5. ABILIFY [Suspect]
     Active Substance: ARIPIPRAZOLE
     Indication: Product used for unknown indication

REACTIONS (5)
  - Seizure [Not Recovered/Not Resolved]
  - Fall [Recovered/Resolved]
  - Drooling [Not Recovered/Not Resolved]
  - Suture insertion [Recovered/Resolved]
  - Anxiety [Unknown]

NARRATIVE: CASE EVENT DATE: 20240304
